FAERS Safety Report 6489866-1 (Version None)
Quarter: 2009Q4

REPORT INFORMATION
  Report Type: 
  Country: None (occurrence: None)
  Receive Date: 20091211
  Receipt Date: 20091203
  Transmission Date: 20100525
  Serious: No
  Sender: FDA-Public Use
  Company Number: US-B.I. PHARMACEUTICALS,INC./RIDGEFIELD-2009-BP-13002BP

PATIENT
  Age: 85 Year
  Sex: Female

DRUGS (5)
  1. MICARDIS HCT [Suspect]
     Route: 048
  2. DIGOXIN [Concomitant]
     Dosage: 125 MCG
  3. LEVOTHYROXINE SODIUM [Concomitant]
     Dosage: 112 MCG
  4. WARFARIN SODIUM [Concomitant]
     Dosage: 5 MG
  5. METOPROLOL [Concomitant]
     Dosage: 150 MG

REACTIONS (6)
  - ADVERSE REACTION [None]
  - ASTHENIA [None]
  - DECREASED APPETITE [None]
  - DIZZINESS [None]
  - HEADACHE [None]
  - RASH [None]
